FAERS Safety Report 9186045 (Version 1)
Quarter: 2013Q1

REPORT INFORMATION
  Report Type: Spontaneous
  Country: US (occurrence: US)
  Receive Date: 20130325
  Receipt Date: 20130325
  Transmission Date: 20140127
  Serious: No
  Sender: FDA-Public Use
  Company Number: US-ASTRAZENECA-2013SE11758

PATIENT
  Age: 27 Year
  Sex: Female
  Weight: 61.2 kg

DRUGS (4)
  1. SEROQUEL [Suspect]
     Indication: SLEEP DISORDER
     Dosage: STARTED ON 1 PILL, THEN INCREASED TO 2 PILLS AND THEN 3 PILLS ETC.
     Route: 048
     Dates: start: 201302, end: 201302
  2. LAMOTRIGINE [Concomitant]
     Indication: DEPRESSION
  3. EFFEXOR [Concomitant]
     Indication: DEPRESSION
  4. LEVOTHYROXINE [Concomitant]
     Indication: HYPERTHYROIDISM

REACTIONS (3)
  - Headache [Not Recovered/Not Resolved]
  - Mental disorder [Unknown]
  - Off label use [Unknown]
